FAERS Safety Report 9482470 (Version 1)
Quarter: 2013Q3

REPORT INFORMATION
  Report Type: Spontaneous
  Country: JP (occurrence: JP)
  Receive Date: 20130828
  Receipt Date: 20130828
  Transmission Date: 20140515
  Serious: Yes (Death, Other)
  Sender: FDA-Public Use
  Company Number: JP-TEVA-427562ISR

PATIENT
  Age: 8 Decade
  Sex: Female

DRUGS (10)
  1. WARFARIN [Suspect]
     Dosage: 3 MILLIGRAM DAILY;
  2. IGURATIMOD [Interacting]
     Indication: RHEUMATOID ARTHRITIS
     Dosage: 25 MILLIGRAM DAILY;
     Route: 048
  3. IGURATIMOD [Interacting]
     Indication: RHEUMATOID ARTHRITIS
     Dosage: 50 MILLIGRAM DAILY;
     Route: 048
  4. SULFASALAZINE [Concomitant]
     Indication: RHEUMATOID ARTHRITIS
  5. TACROLIMUS [Concomitant]
     Indication: RHEUMATOID ARTHRITIS
  6. PREDNISOLONE [Concomitant]
     Indication: RHEUMATOID ARTHRITIS
  7. TEPRENONE [Concomitant]
  8. SULINDAC [Concomitant]
  9. ZOLPIDEM [Concomitant]
  10. RISEDRONIC ACID [Concomitant]

REACTIONS (3)
  - Pulmonary alveolar haemorrhage [Fatal]
  - Drug interaction [Fatal]
  - Prothrombin time prolonged [Recovered/Resolved]
